FAERS Safety Report 5479828-5 (Version None)
Quarter: 2007Q4

REPORT INFORMATION
  Report Type: 
  Country: None (occurrence: None)
  Receive Date: 20071003
  Receipt Date: 20070918
  Transmission Date: 20080405
  Serious: Yes (Hospitalization)
  Sender: FDA-Public Use
  Company Number: CIP07001792

PATIENT
  Age: 10 Year
  Sex: Female
  Weight: 31 kg

DRUGS (9)
  1. ASACOL [Suspect]
     Indication: COLITIS ULCERATIVE
     Dosage: 800 MG THREE TIMES DAILY, ORAL,  400 MG THREE TIMES DAILY, ORAL
     Route: 048
     Dates: start: 20060320
  2. ASACOL [Suspect]
     Indication: COLITIS ULCERATIVE
     Dosage: 800 MG THREE TIMES DAILY, ORAL,  400 MG THREE TIMES DAILY, ORAL
     Route: 048
     Dates: start: 20060919
  3. REMICADE [Suspect]
     Indication: COLITIS ULCERATIVE
     Dosage: IV NOS
     Route: 042
     Dates: start: 20060901
  4. IMURAN [Suspect]
     Indication: COLITIS ULCERATIVE
     Dosage: 50 MG DAILY, ORAL; 25 MG DAILY, ORAL
     Route: 048
     Dates: start: 20060901
  5. IMURAN [Suspect]
     Indication: COLITIS ULCERATIVE
     Dosage: 50 MG DAILY, ORAL; 25 MG DAILY, ORAL
     Route: 048
     Dates: start: 20060929
  6. PREDNISONE [Concomitant]
  7. FLAGYL [Concomitant]
  8. IRON (IRON) [Concomitant]
  9. VITAMINS [Concomitant]

REACTIONS (20)
  - ABDOMINAL DISCOMFORT [None]
  - ALANINE AMINOTRANSFERASE INCREASED [None]
  - ANAEMIA [None]
  - ANOREXIA [None]
  - ASPARTATE AMINOTRANSFERASE INCREASED [None]
  - ATELECTASIS [None]
  - BLOOD ALBUMIN DECREASED [None]
  - BLOOD ALKALINE PHOSPHATASE INCREASED [None]
  - CHEST PAIN [None]
  - DEHYDRATION [None]
  - DYSPNOEA [None]
  - FATIGUE [None]
  - LOBAR PNEUMONIA [None]
  - NO THERAPEUTIC RESPONSE [None]
  - PERICARDIAL EFFUSION [None]
  - PLATELET COUNT INCREASED [None]
  - PLEURAL EFFUSION [None]
  - PNEUMONIA MYCOPLASMAL [None]
  - PROTEIN TOTAL DECREASED [None]
  - PYREXIA [None]
